FAERS Safety Report 19495704 (Version 1)
Quarter: 2021Q3

REPORT INFORMATION
  Report Type: Spontaneous
  Country: FR (occurrence: FR)
  Receive Date: 20210706
  Receipt Date: 20210706
  Transmission Date: 20211014
  Serious: Yes (Hospitalization)
  Sender: FDA-Public Use
  Company Number: FR-TEVA-2021-FR-1929047

PATIENT
  Age: 56 Year
  Sex: Male
  Weight: 82 kg

DRUGS (10)
  1. LIPTRUZET [Concomitant]
     Active Substance: ATORVASTATIN CALCIUM\EZETIMIBE
     Dosage: 1 DF, THERAPY START DATE: ASKU
     Route: 048
     Dates: end: 20210526
  2. ABASAGLAR [Concomitant]
     Active Substance: INSULIN GLARGINE
     Dosage: 36 IU, THERAPY START DATE: ASKU
     Route: 058
     Dates: end: 20210526
  3. FUROSEMIDE. [Concomitant]
     Active Substance: FUROSEMIDE
     Dosage: 40 MG, THERAPY START DATE: ASKU
     Route: 048
     Dates: end: 20210526
  4. PREGABALINE [Concomitant]
     Active Substance: PREGABALIN
     Dosage: 400 MG, THERAPY START DATE: ASKU
     Route: 048
     Dates: end: 20210526
  5. METFORMINE [Suspect]
     Active Substance: METFORMIN HYDROCHLORIDE
     Indication: TYPE 2 DIABETES MELLITUS
     Dosage: 1700 MG, THERAPY START DATE: ASKU
     Route: 048
     Dates: end: 20210526
  6. NOVORAPID [Concomitant]
     Active Substance: INSULIN ASPART
     Dosage: 36 IU, THERAPY START DATE: ASKU
     Route: 058
     Dates: end: 20210526
  7. PERINDOPRIL [Concomitant]
     Active Substance: PERINDOPRIL
     Dosage: 5 MG, THERAPY START DATE: ASKU
     Route: 048
     Dates: end: 20210526
  8. SILODOSINE [Concomitant]
     Active Substance: SILODOSIN
     Dosage: 8 MG, THERAPY START DATE: ASKU
     Route: 048
     Dates: end: 20210526
  9. CLOPIDOGREL [Concomitant]
     Active Substance: CLOPIDOGREL BISULFATE
     Dosage: 75 MG, THERAPY START DATE: ASKU
     Route: 048
     Dates: end: 20210526
  10. ALLOPURINOL. [Concomitant]
     Active Substance: ALLOPURINOL
     Dosage: 300 MG, THERAPY START DATE: ASKU
     Route: 048
     Dates: end: 20210526

REACTIONS (2)
  - Hyperlactacidaemia [Recovered/Resolved]
  - Overdose [Recovered/Resolved]

NARRATIVE: CASE EVENT DATE: 20210526
